FAERS Safety Report 21528953 (Version 2)
Quarter: 2022Q4

REPORT INFORMATION
  Report Type: Spontaneous
  Country: US (occurrence: US)
  Receive Date: 20221031
  Receipt Date: 20221201
  Transmission Date: 20230113
  Serious: No
  Sender: FDA-Public Use
  Company Number: US-BEH-2022151142

PATIENT
  Sex: Female

DRUGS (3)
  1. HIZENTRA [Suspect]
     Active Substance: HUMAN IMMUNOGLOBULIN G
     Indication: Selective IgA immunodeficiency
     Dosage: 9 GRAM, QW
     Route: 058
     Dates: start: 20221012, end: 20221014
  2. HIZENTRA [Suspect]
     Active Substance: HUMAN IMMUNOGLOBULIN G
     Dosage: 9 GRAM, QW
     Route: 058
     Dates: start: 20221012
  3. HIZENTRA [Suspect]
     Active Substance: HUMAN IMMUNOGLOBULIN G
     Dosage: 9 GRAM, QW
     Route: 058
     Dates: start: 202210

REACTIONS (7)
  - Nausea [Unknown]
  - Infusion site mass [Unknown]
  - Urine output decreased [Unknown]
  - Dyspnoea [Unknown]
  - Eye colour change [Unknown]
  - Chromaturia [Unknown]
  - Pruritus [Unknown]
